FAERS Safety Report 26012536 (Version 2)
Quarter: 2025Q4

REPORT INFORMATION
  Report Type: Spontaneous
  Country: CN (occurrence: CN)
  Receive Date: 20251107
  Receipt Date: 20251107
  Transmission Date: 20260117
  Serious: Yes (Other)
  Sender: SANDOZ
  Company Number: CN-002147023-NVSC2025CN165674

PATIENT
  Age: 5 Year
  Sex: Male
  Weight: 28 kg

DRUGS (3)
  1. DEXAMETHASONE\TOBRAMYCIN [Suspect]
     Active Substance: DEXAMETHASONE\TOBRAMYCIN
     Indication: Symptomatic treatment
     Dosage: 1 DRP, QID
     Route: 047
     Dates: start: 20251004, end: 20251013
  2. AMIKACIN [Concomitant]
     Active Substance: AMIKACIN
     Indication: Product used for unknown indication
     Dosage: 1 DRP, QID
     Route: 047
     Dates: start: 20251004, end: 20251013
  3. OXYCODONE HYDROCHLORIDE\OXYCODONE TEREPHTHALATE [Concomitant]
     Active Substance: OXYCODONE HYDROCHLORIDE\OXYCODONE TEREPHTHALATE
     Indication: Symptomatic treatment
     Dosage: 1 DRP, TID
     Route: 047
     Dates: start: 20251004, end: 20251013

REACTIONS (3)
  - Glaucoma [Unknown]
  - Intraocular pressure increased [Recovering/Resolving]
  - Drug ineffective [Unknown]

NARRATIVE: CASE EVENT DATE: 20251001
